FAERS Safety Report 4987928-9 (Version None)
Quarter: 2006Q2

REPORT INFORMATION
  Report Type: 
  Country: None (occurrence: None)
  Receive Date: 20060424
  Receipt Date: 20060410
  Transmission Date: 20061013
  Serious: Yes (Hospitalization)
  Sender: FDA-Public Use
  Company Number: ORYNIA20060010

PATIENT
  Age: 58 Year
  Sex: Male
  Weight: 111.1313 kg

DRUGS (6)
  1. NIASPAN [Suspect]
     Indication: HYPERLIPIDAEMIA
     Dosage: 500 MG PO
     Route: 048
     Dates: start: 20060227, end: 20060302
  2. MONOCOR [Concomitant]
  3. SYNTHROID [Concomitant]
  4. NEXIUM [Concomitant]
  5. VASOTEC [Concomitant]
  6. ASPIRIN [Concomitant]

REACTIONS (6)
  - BURNING SENSATION [None]
  - DRY MOUTH [None]
  - DYSPNOEA [None]
  - FLUSHING [None]
  - PRURITUS [None]
  - SWOLLEN TONGUE [None]
